FAERS Safety Report 9205697 (Version 1)
Quarter: 2013Q2

REPORT INFORMATION
  Report Type: Spontaneous
  Country: US (occurrence: US)
  Receive Date: 20130403
  Receipt Date: 20130403
  Transmission Date: 20140414
  Serious: No
  Sender: FDA-Public Use
  Company Number: US-BIOGENIDEC-2013BI029879

PATIENT
  Age: 44 Year
  Sex: Male

DRUGS (2)
  1. TYSABRI [Suspect]
     Indication: MULTIPLE SCLEROSIS
     Route: 042
     Dates: start: 20090827
  2. IV FLUIDS [Concomitant]
     Indication: INFLUENZA LIKE ILLNESS
     Route: 042

REACTIONS (4)
  - Muscle spasms [Recovered/Resolved]
  - Chromaturia [Recovered/Resolved]
  - Muscular weakness [Not Recovered/Not Resolved]
  - Localised infection [Recovered/Resolved]
